FAERS Safety Report 10631462 (Version 2)
Quarter: 2014Q4

REPORT INFORMATION
  Report Type: Spontaneous
  Country: US (occurrence: US)
  Receive Date: 20141205
  Receipt Date: 20141205
  Transmission Date: 20150529
  Serious: No
  Sender: FDA-Public Use
  Company Number: US-BRISTOL-MYERS SQUIBB COMPANY-21100912

PATIENT
  Age: 54 Year
  Sex: Female

DRUGS (1)
  1. ABATACEPT SUBQ INJECTION 125MG/ML [Suspect]
     Active Substance: ABATACEPT
     Indication: RHEUMATOID ARTHRITIS
     Route: 058
     Dates: start: 2013

REACTIONS (4)
  - Drug ineffective [Unknown]
  - Diarrhoea [Unknown]
  - Herpes zoster [Unknown]
  - Skin ulcer [Recovering/Resolving]

NARRATIVE: CASE EVENT DATE: 201310
